FAERS Safety Report 8361431-0 (Version None)
Quarter: 2012Q2

REPORT INFORMATION
  Report Type: 
  Country: None (occurrence: None)
  Receive Date: 20120514
  Receipt Date: 20120428
  Transmission Date: 20120825
  Serious: Yes (Life-Threatening, Hospitalization)
  Sender: FDA-Public Use
  Company Number: 2021R1-56114

PATIENT
  Age: 42 Year
  Sex: Female

DRUGS (11)
  1. OMEPRAZOLE [Suspect]
     Indication: PRODUCT USED FOR UNKNOWN INDICATION
     Dosage: 20 MG, BID, ORAL
     Route: 048
  2. GABAPENTIN [Suspect]
     Indication: PRODUCT USED FOR UNKNOWN INDICATION
     Dosage: 600 MG, QID, ORAL
     Route: 048
  3. SCHERIPROCT (CINCHOCAINE HYDROCHLORIDE, HEXACHLOROPHES, PREDNISOLINE C [Concomitant]
  4. FLOXACILLIN SODIUM [Concomitant]
  5. HYDROXYCHLOROQUINE SULFATE [Suspect]
     Indication: RHEUMATOID ARTHRITIS
     Dosage: 400 MG, QD, ORAL
     Route: 048
  6. SULFASALAZINE [Suspect]
     Indication: PRODUCT USED FOR UNKNOWN INDICATION
     Dosage: ORAL
     Route: 048
  7. BENZYDAMINE (BENZYDAMINE) [Concomitant]
  8. VENLAFAXINE HCL [Suspect]
     Indication: PRODUCT USED FOR UNKNOWN INDICATION
     Dosage: 75 MG, BID, ORAL
     Route: 048
  9. NYSTATIN [Concomitant]
  10. MICONAZOLE (MICONAZOLE) [Concomitant]
  11. METHOTREXATE [Suspect]
     Indication: PRODUCT USED FOR UNKNOWN INDICATION
     Dosage: 25 MG, 1/WEEK, ORAL
     Route: 048

REACTIONS (7)
  - ACUTE MYELOID LEUKAEMIA [None]
  - FULL BLOOD COUNT ABNORMAL [None]
  - THROMBOCYTOPENIA [None]
  - ABDOMINAL PAIN [None]
  - DIARRHOEA [None]
  - HAEMATEMESIS [None]
  - CONTUSION [None]
